FAERS Safety Report 13753060 (Version 1)
Quarter: 2017Q3

REPORT INFORMATION
  Report Type: Spontaneous
  Country: US (occurrence: US)
  Receive Date: 20170713
  Receipt Date: 20170713
  Transmission Date: 20171127
  Serious: Yes (Hospitalization)
  Sender: FDA-Public Use
  Company Number: None

PATIENT
  Age: 80 Year
  Sex: Female

DRUGS (14)
  1. CARTIA XT [Concomitant]
     Active Substance: DILTIAZEM HYDROCHLORIDE
  2. MULTAQ [Concomitant]
     Active Substance: DRONEDARONE
  3. DILTIAZEM. [Concomitant]
     Active Substance: DILTIAZEM
  4. LEVEMIR [Concomitant]
     Active Substance: INSULIN DETEMIR
  5. FUROSEMIDE. [Concomitant]
     Active Substance: FUROSEMIDE
  6. HUMALOG [Concomitant]
     Active Substance: INSULIN LISPRO
  7. AZITHROMYCIN ANHYDROUS. [Concomitant]
     Active Substance: AZITHROMYCIN ANHYDROUS
  8. ALPRAZOLAM. [Concomitant]
     Active Substance: ALPRAZOLAM
  9. HYDROMET [Concomitant]
     Active Substance: HOMATROPINE METHYLBROMIDE\HYDROCODONE BITARTRATE
  10. DIGOX [Concomitant]
     Active Substance: DIGOXIN
  11. WARFARIN [Concomitant]
     Active Substance: WARFARIN
  12. ESBRIET [Suspect]
     Active Substance: PIRFENIDONE
     Indication: IDIOPATHIC PULMONARY FIBROSIS
     Route: 048
     Dates: start: 20170623
  13. PREDNISONE. [Concomitant]
     Active Substance: PREDNISONE
  14. LEVOTHYROXIN [Concomitant]
     Active Substance: LEVOTHYROXINE

REACTIONS (2)
  - Drug dose omission [None]
  - Hospitalisation [None]

NARRATIVE: CASE EVENT DATE: 20170713
